FAERS Safety Report 10979620 (Version 1)
Quarter: 2015Q2

REPORT INFORMATION
  Report Type: Spontaneous
  Country: US (occurrence: US)
  Receive Date: 20150402
  Receipt Date: 20150402
  Transmission Date: 20150821
  Serious: No
  Sender: FDA-Public Use
  Company Number: US-BAYER-2015-099219

PATIENT
  Age: 78 Year
  Sex: Female

DRUGS (3)
  1. BAYER LOW DOSE [Concomitant]
     Active Substance: ASPIRIN
  2. ALEVE PM [Suspect]
     Active Substance: DIPHENHYDRAMINE HYDROCHLORIDE\NAPROXEN SODIUM
     Indication: BACK PAIN
     Dosage: 2 DF, QD
     Route: 048
     Dates: start: 201409
  3. ALEVE PM [Suspect]
     Active Substance: DIPHENHYDRAMINE HYDROCHLORIDE\NAPROXEN SODIUM
     Indication: MUSCLE SPASMS

REACTIONS (1)
  - Incorrect drug administration duration [Unknown]

NARRATIVE: CASE EVENT DATE: 201409
